FAERS Safety Report 21959208 (Version 1)
Quarter: 2023Q1

REPORT INFORMATION
  Report Type: Spontaneous
  Country: FR (occurrence: FR)
  Receive Date: 20230206
  Receipt Date: 20230206
  Transmission Date: 20230418
  Serious: Yes (Other)
  Sender: FDA-Public Use
  Company Number: None

PATIENT
  Age: 42 Year
  Sex: Male

DRUGS (1)
  1. SPIRONOLACTONE [Suspect]
     Active Substance: SPIRONOLACTONE
     Indication: Primary hyperaldosteronism
     Dosage: 100 MILLIGRAM, QD
     Route: 048
     Dates: start: 20220708, end: 20221107

REACTIONS (3)
  - Liver injury [Recovering/Resolving]
  - Abdominal pain [Recovering/Resolving]
  - Gynaecomastia [Recovering/Resolving]
